FAERS Safety Report 5122082-4 (Version None)
Quarter: 2006Q4

REPORT INFORMATION
  Report Type: 
  Country: None (occurrence: None)
  Receive Date: 20061006
  Receipt Date: 20060602
  Transmission Date: 20070319
  Serious: Yes (Hospitalization)
  Sender: FDA-Public Use
  Company Number: FR-NOVOPROD-253848

PATIENT
  Age: 65 Year
  Sex: Male
  Weight: 72 kg

DRUGS (4)
  1. NOVOSEVEN [Suspect]
     Indication: UPPER GASTROINTESTINAL HAEMORRHAGE
     Dosage: 600 UG/KG, UNK
     Route: 042
     Dates: start: 20060523, end: 20060524
  2. SANDOSTATINE                       /00821001/ [Concomitant]
     Dosage: 1200 UG, QD
     Route: 042
     Dates: start: 20060523, end: 20060528
  3. CLAFORAN [Concomitant]
     Dosage: 3 G, QD
     Route: 042
     Dates: start: 20060524, end: 20060526
  4. NOROXIN [Concomitant]
     Dosage: 400 MG, QD
     Route: 048
     Dates: start: 20060526

REACTIONS (2)
  - HEPATIC NEOPLASM MALIGNANT [None]
  - PORTAL VEIN THROMBOSIS [None]
